FAERS Safety Report 9376961 (Version 1)
Quarter: 2013Q3

REPORT INFORMATION
  Report Type: Spontaneous
  Country: US (occurrence: US)
  Receive Date: 20130701
  Receipt Date: 20130701
  Transmission Date: 20140515
  Serious: Yes (Hospitalization, Other)
  Sender: FDA-Public Use
  Company Number: US-SANOFI-AVENTIS-2013SA064413

PATIENT
  Age: 35 Year
  Sex: Male

DRUGS (2)
  1. APIDRA [Suspect]
     Indication: TYPE 1 DIABETES MELLITUS
     Dosage: DOSE:22 UNIT(S)
     Route: 058
     Dates: start: 2007
  2. LANTUS [Suspect]

REACTIONS (7)
  - Loss of consciousness [Unknown]
  - Eye disorder [Unknown]
  - Hypoglycaemia [Unknown]
  - Migraine [Unknown]
  - Blood glucose increased [Unknown]
  - Blood glucose decreased [Unknown]
  - Speech disorder [Unknown]
